FAERS Safety Report 6274691-7 (Version None)
Quarter: 2009Q3

REPORT INFORMATION
  Report Type: 
  Country: None (occurrence: None)
  Receive Date: 20090721
  Receipt Date: 20080208
  Transmission Date: 20100115
  Serious: Yes (Other)
  Sender: FDA-Public Use
  Company Number: US-ASTRAZENECA-2006UW25386

PATIENT
  Age: 38 Year
  Sex: Male
  Weight: 103.9 kg

DRUGS (22)
  1. SEROQUEL [Suspect]
     Indication: SLEEP DISORDER
     Route: 048
     Dates: start: 20021201
  2. SEROQUEL [Suspect]
     Dosage: 200-300 MG
     Route: 048
     Dates: start: 20021222
  3. LITHIUM CARBONATE [Concomitant]
  4. PLAVIX [Concomitant]
  5. LOPRESSOR [Concomitant]
  6. LEVOTHYROXINE SODIUM [Concomitant]
  7. FIORICET [Concomitant]
  8. ALBUTEROL [Concomitant]
  9. TRAMADOL HCL [Concomitant]
  10. VICODIN [Concomitant]
  11. ANTIVERT [Concomitant]
  12. NITROLINGUAL [Concomitant]
  13. DYAZIDE [Concomitant]
  14. ZETIA [Concomitant]
  15. LOPID [Concomitant]
  16. NEXIUM [Concomitant]
  17. GLUCOPHAGE [Concomitant]
  18. DILTIAZEM [Concomitant]
  19. SINGULAIR [Concomitant]
  20. CELEXA [Concomitant]
  21. REMERON [Concomitant]
  22. DEPAKOTE [Concomitant]

REACTIONS (3)
  - DIABETES MELLITUS [None]
  - DIABETIC GASTROPATHY [None]
  - METABOLIC SYNDROME [None]
